FAERS Safety Report 4286012-X (Version None)
Quarter: 2004Q1

REPORT INFORMATION
  Report Type: 
  Country: None (occurrence: None)
  Receive Date: 20040203
  Receipt Date: 20031211
  Transmission Date: 20041129
  Serious: No
  Sender: FDA-Public Use
  Company Number: 2004SE00360

PATIENT
  Age: 88 Year
  Sex: Female

DRUGS (1)
  1. NEXIUM [Suspect]

REACTIONS (1)
  - GASTROINTESTINAL DISORDER [None]
